FAERS Safety Report 8217261-3 (Version None)
Quarter: 2012Q1

REPORT INFORMATION
  Report Type: 
  Country: None (occurrence: None)
  Receive Date: 20120319
  Receipt Date: 20120315
  Transmission Date: 20120608
  Serious: No
  Sender: FDA-Public Use
  Company Number: US-PFIZER INC-2012068771

PATIENT
  Sex: Male
  Weight: 72.562 kg

DRUGS (2)
  1. ALLEGRA [Concomitant]
     Indication: HYPERSENSITIVITY
     Dosage: 10 MG, DAILY
  2. GABAPENTIN [Suspect]
     Indication: LYME DISEASE
     Dosage: 400 MG, 2X/DAY
     Route: 048
     Dates: start: 20120201

REACTIONS (2)
  - HYPERSENSITIVITY [None]
  - URTICARIA [None]
